FAERS Safety Report 5852315-8 (Version None)
Quarter: 2008Q3

REPORT INFORMATION
  Report Type: 
  Country: None (occurrence: None)
  Receive Date: 20080821
  Receipt Date: 20080813
  Transmission Date: 20090109
  Serious: Yes (Other)
  Sender: FDA-Public Use
  Company Number: PHHY2008BR18048

PATIENT
  Sex: Female

DRUGS (2)
  1. EXELON [Suspect]
     Indication: MEMORY IMPAIRMENT
     Dosage: 2 CAPS DAILY
     Route: 048
     Dates: end: 20080713
  2. MEMANTINE HCL [Concomitant]
     Indication: MEMORY IMPAIRMENT

REACTIONS (7)
  - BLOOD PRESSURE FLUCTUATION [None]
  - CRYING [None]
  - HEADACHE [None]
  - INSOMNIA [None]
  - RENAL ARTERY STENOSIS [None]
  - SUFFOCATION FEELING [None]
  - VISUAL IMPAIRMENT [None]
